FAERS Safety Report 16123745 (Version 1)
Quarter: 2019Q1

REPORT INFORMATION
  Report Type: Spontaneous
  Country: IT (occurrence: IT)
  Receive Date: 20190327
  Receipt Date: 20190327
  Transmission Date: 20190418
  Serious: Yes (Hospitalization)
  Sender: FDA-Public Use
  Company Number: IT-MYLANLABS-2019M1026773

PATIENT
  Age: 7 Year
  Sex: Male

DRUGS (5)
  1. PARACETAMOL [Suspect]
     Active Substance: ACETAMINOPHEN
     Indication: EAR INFECTION
     Dosage: UNK
  2. PHENAZONE;PROCAINE [Suspect]
     Active Substance: ANTIPYRINE\PROCAINE
     Indication: EAR INFECTION
     Dosage: UNK
  3. AMOXICILLIN/CLAVULANATE POTASSIUM/CLAVULANIC ACID [Suspect]
     Active Substance: AMOXICILLIN\CLAVULANATE POTASSIUM
     Indication: EAR INFECTION
     Dosage: UNK
  4. CLARITHROMYCIN. [Suspect]
     Active Substance: CLARITHROMYCIN
     Indication: EAR INFECTION
  5. MORNIFLUMATE [Suspect]
     Active Substance: MORNIFLUMATE
     Indication: EAR INFECTION
     Dosage: UNK

REACTIONS (1)
  - Vasculitis [Unknown]
